FAERS Safety Report 18425347 (Version 4)
Quarter: 2021Q1

REPORT INFORMATION
  Report Type: Spontaneous
  Country: JP (occurrence: JP)
  Receive Date: 20201026
  Receipt Date: 20210315
  Transmission Date: 20210419
  Serious: Yes (Hospitalization, Other)
  Sender: FDA-Public Use
  Company Number: JP-ELI_LILLY_AND_COMPANY-JP202010008597

PATIENT
  Age: 75 Year
  Sex: Male

DRUGS (4)
  1. G LASTA [Concomitant]
     Active Substance: PEGFILGRASTIM
  2. NECITUMUMAB [Suspect]
     Active Substance: NECITUMUMAB
     Indication: LUNG SQUAMOUS CELL CARCINOMA RECURRENT
     Dosage: 800 MG
     Route: 042
     Dates: start: 20200924, end: 20201001
  3. GEMCITABINE. [Suspect]
     Active Substance: GEMCITABINE
     Indication: LUNG SQUAMOUS CELL CARCINOMA RECURRENT
     Dosage: 1250 MG/M2
     Route: 042
     Dates: start: 20200924, end: 20201001
  4. CISPLATIN. [Suspect]
     Active Substance: CISPLATIN
     Indication: LUNG SQUAMOUS CELL CARCINOMA RECURRENT
     Dosage: 75 MG/M2
     Route: 042
     Dates: start: 20200924, end: 20200924

REACTIONS (7)
  - Hypomagnesaemia [Unknown]
  - Malignant neoplasm progression [Unknown]
  - Anaemia [Not Recovered/Not Resolved]
  - Skin disorder [Recovering/Resolving]
  - Neutrophil count decreased [Recovered/Resolved]
  - Platelet count decreased [Recovered/Resolved]
  - Stomatitis [Not Recovered/Not Resolved]

NARRATIVE: CASE EVENT DATE: 20201003
